FAERS Safety Report 19723105 (Version 1)
Quarter: 2021Q3

REPORT INFORMATION
  Report Type: Spontaneous
  Country: US (occurrence: US)
  Receive Date: 20210819
  Receipt Date: 20210819
  Transmission Date: 20211014
  Serious: Yes (Hospitalization, Other)
  Sender: FDA-Public Use
  Company Number: US-PFIZER INC-2021717180

PATIENT
  Age: 73 Year
  Sex: Female

DRUGS (2)
  1. VFEND [Suspect]
     Active Substance: VORICONAZOLE
     Dosage: 50 MG, 2X/DAY (BID)
  2. VFEND [Suspect]
     Active Substance: VORICONAZOLE
     Dosage: 200 MG 2X/DAY (BID) (QTY OF 60)
     Route: 048

REACTIONS (3)
  - Fall [Unknown]
  - Off label use [Unknown]
  - Myocardial infarction [Unknown]
